FAERS Safety Report 8875935 (Version 2)
Quarter: 2012Q4

REPORT INFORMATION
  Report Type: 
  Country: GB (occurrence: GB)
  Receive Date: 20121023
  Receipt Date: 20121109
  Transmission Date: 20130627
  Serious: Yes (Other)
  Sender: FDA-Public Use
  Company Number: GB-GLAXOSMITHKLINE-B0838669A

PATIENT
  Age: 80 Year
  Sex: Male

DRUGS (1)
  1. ZANTAC [Suspect]
     Indication: DRUG HYPERSENSITIVITY
     Dosage: 300MG Twice per day
     Route: 048
     Dates: start: 1987

REACTIONS (11)
  - Wound [Not Recovered/Not Resolved]
  - Wound secretion [Not Recovered/Not Resolved]
  - Wound complication [Not Recovered/Not Resolved]
  - Rash macular [Unknown]
  - Oedema peripheral [Unknown]
  - Rash pruritic [Unknown]
  - Purpura [Unknown]
  - Skin ulcer [Unknown]
  - Irritability [Unknown]
  - Feeling abnormal [Unknown]
  - Poor quality sleep [Unknown]
